FAERS Safety Report 17274411 (Version 2)
Quarter: 2022Q3

REPORT INFORMATION
  Report Type: Spontaneous
  Country: DK (occurrence: DK)
  Receive Date: 20200115
  Receipt Date: 20220824
  Transmission Date: 20221026
  Serious: Yes (Disabling, Other)
  Sender: FDA-Public Use
  Company Number: None

PATIENT
  Age: 32 Year
  Sex: Female

DRUGS (2)
  1. ELIDEL [Suspect]
     Active Substance: PIMECROLIMUS
     Indication: Eczema
     Dosage: 2 TIMES DAILY FOR 2-3 WEEKS, 1 TIME DAILY FOR 2-3 WEEKS AND EVERY 2ND DAY FOR 2-3 WEEKS
     Route: 003
     Dates: start: 20190402
  2. DICLOXACILLIN SODIUM [Concomitant]
     Active Substance: DICLOXACILLIN SODIUM
     Indication: Skin infection
     Route: 048
     Dates: start: 20190421, end: 20190505

REACTIONS (8)
  - General physical health deterioration [Unknown]
  - Fatigue [Unknown]
  - Asthenia [Unknown]
  - Eczema [Recovering/Resolving]
  - Pruritus [Unknown]
  - Erythema [Unknown]
  - Staphylococcal infection [Recovered/Resolved]
  - Pyrexia [Recovered/Resolved]

NARRATIVE: CASE EVENT DATE: 20190101
